FAERS Safety Report 23539694 (Version 1)
Quarter: 2024Q1

REPORT INFORMATION
  Report Type: Spontaneous
  Country: FR (occurrence: None)
  Receive Date: 20240219
  Receipt Date: 20240219
  Transmission Date: 20240409
  Serious: Yes (Death, Life-Threatening, Hospitalization)
  Sender: FDA-Public Use
  Company Number: 2024A038077

PATIENT
  Age: 81 Year
  Sex: Male
  Weight: 85 kg

DRUGS (2)
  1. TICAGRELOR [Suspect]
     Active Substance: TICAGRELOR
     Indication: Myocardial ischaemia
     Dosage: 90 MG/DAY
     Route: 048
     Dates: start: 20230901, end: 20231223
  2. KARDEGIC [Suspect]
     Active Substance: ASPIRIN DL-LYSINE
     Indication: Myocardial ischaemia
     Dosage: 75 MG/DAY
     Route: 048
     Dates: start: 20230901, end: 20231223

REACTIONS (2)
  - Subdural haematoma [Fatal]
  - Cerebral mass effect [Fatal]

NARRATIVE: CASE EVENT DATE: 20231223
